FAERS Safety Report 4545189-9 (Version None)
Quarter: 2005Q1

REPORT INFORMATION
  Report Type: 
  Country: None (occurrence: None)
  Receive Date: 20050103
  Receipt Date: 20041223
  Transmission Date: 20050727
  Serious: Yes (Other)
  Sender: FDA-Public Use
  Company Number: 2004120013

PATIENT
  Age: 71 Year
  Sex: Female
  Weight: 66.6788 kg

DRUGS (7)
  1. CETIRIZINE HCL [Suspect]
     Indication: RASH
     Dosage: DAILY AS NEEDED
     Dates: start: 20040601
  2. FELODIPINE [Concomitant]
  3. METFORMIN HCL [Concomitant]
  4. GLICLAZIDE [Concomitant]
  5. VALSARTAN [Concomitant]
  6. ROSIGLITAZONE MALEATE [Concomitant]
  7. ATORVASTATIN [Concomitant]

REACTIONS (4)
  - ABASIA [None]
  - APHASIA [None]
  - BLOOD GLUCOSE DECREASED [None]
  - VISUAL ACUITY REDUCED [None]
